FAERS Safety Report 7336996-8 (Version None)
Quarter: 2011Q1

REPORT INFORMATION
  Report Type: 
  Country: None (occurrence: None)
  Receive Date: 20110308
  Receipt Date: 20110228
  Transmission Date: 20110831
  Serious: Yes (Other)
  Sender: FDA-Public Use
  Company Number: US-BAYER-2011-019598

PATIENT
  Sex: Male
  Weight: 76.19 kg

DRUGS (2)
  1. ALKA-SELTZER PLUS MUCUS + CONGESTION [Suspect]
     Indication: NASOPHARYNGITIS
     Dosage: 1 DF, ONCE
     Route: 048
     Dates: start: 20110224, end: 20110224
  2. ASPIRIN [Concomitant]
     Indication: ARTHRITIS
     Dosage: 2 DF, QD
     Route: 048

REACTIONS (6)
  - CHOKING [None]
  - APHAGIA [None]
  - DYSPNOEA [None]
  - DYSPHONIA [None]
  - FOREIGN BODY [None]
  - THROAT IRRITATION [None]
